FAERS Safety Report 7726714-3 (Version None)
Quarter: 2011Q3

REPORT INFORMATION
  Report Type: 
  Country: None (occurrence: None)
  Receive Date: 20110902
  Receipt Date: 20110831
  Transmission Date: 20111222
  Serious: Yes (Death, Hospitalization, Other)
  Sender: FDA-Public Use
  Company Number: PHHY2011US55125

PATIENT
  Sex: Female
  Weight: 70.748 kg

DRUGS (2)
  1. EXJADE [Suspect]
     Indication: NEOPLASM
     Dosage: 250 MG, PER DAY
     Route: 048
     Dates: start: 20090304, end: 20090401
  2. EXJADE [Suspect]
     Dosage: 1500 MG, DAILY
     Route: 048

REACTIONS (4)
  - DEATH [None]
  - CELLULITIS [None]
  - NECROSIS [None]
  - PRURITUS [None]
